FAERS Safety Report 21455388 (Version 2)
Quarter: 2024Q1

REPORT INFORMATION
  Report Type: Spontaneous
  Country: US (occurrence: US)
  Receive Date: 20221014
  Receipt Date: 20240301
  Transmission Date: 20240409
  Serious: No
  Sender: FDA-Public Use
  Company Number: US-CIPLA LTD.-2022US05841

PATIENT

DRUGS (7)
  1. PREGABALIN [Suspect]
     Active Substance: PREGABALIN
     Indication: Pudendal canal syndrome
     Dosage: UNK, PREGABALIN 25 MG (UNKNOWN MANUFACTURER)
     Route: 065
  2. PREGABALIN [Suspect]
     Active Substance: PREGABALIN
     Dosage: 50 MILLIGRAM, QD
     Route: 065
  3. PREGABALIN [Suspect]
     Active Substance: PREGABALIN
     Dosage: 50 MILLIGRAM, TID
     Route: 048
     Dates: start: 202209, end: 202209
  4. PREGABALIN [Suspect]
     Active Substance: PREGABALIN
     Dosage: UNK, STARTED WITH 2 CAPSULES OF PREGABALIN 25 MG
     Route: 065
     Dates: start: 202209
  5. TYLENOL [Concomitant]
     Active Substance: ACETAMINOPHEN
     Indication: Pain
     Dosage: UNK, PRN (AS AND WHEN REQUIRED (S.O.S.))
     Route: 065
     Dates: start: 202112
  6. FLEXERIL [Concomitant]
     Active Substance: CYCLOBENZAPRINE HYDROCHLORIDE
     Indication: Pain
     Dosage: UNK, PRN (AS AND WHEN REQUIRED (S.O.S.))
     Route: 065
     Dates: start: 202112
  7. VALIUM [Concomitant]
     Active Substance: DIAZEPAM
     Indication: Depression
     Dosage: UNK
     Route: 065
     Dates: start: 202112, end: 202201

REACTIONS (5)
  - Influenza [Recovering/Resolving]
  - Drug ineffective [Recovering/Resolving]
  - Product quality issue [Unknown]
  - Off label use [Unknown]
  - Product use in unapproved indication [Unknown]

NARRATIVE: CASE EVENT DATE: 20220901
